FAERS Safety Report 7965991-0 (Version None)
Quarter: 2011Q4

REPORT INFORMATION
  Report Type: 
  Country: None (occurrence: None)
  Receive Date: 20111208
  Receipt Date: 20111201
  Transmission Date: 20120403
  Serious: Yes (Hospitalization, Disabling)
  Sender: FDA-Public Use
  Company Number: US-ABBOTT-11P-163-0880562-00

PATIENT
  Sex: Female
  Weight: 106.69 kg

DRUGS (6)
  1. HUMIRA [Suspect]
     Indication: PSORIASIS
     Dates: start: 20111019
  2. SIMVASTATIN [Concomitant]
     Indication: BLOOD CHOLESTEROL INCREASED
  3. UNKNOWN MEDICATION [Concomitant]
     Indication: HYPERTENSION
  4. LASIX [Concomitant]
     Indication: CARDIAC FAILURE CONGESTIVE
  5. LASIX [Concomitant]
     Indication: OEDEMA PERIPHERAL
  6. LASIX [Concomitant]
     Indication: PULMONARY CONGESTION

REACTIONS (7)
  - HEADACHE [None]
  - OXYGEN SATURATION DECREASED [None]
  - COUGH [None]
  - IMPAIRED WORK ABILITY [None]
  - NASOPHARYNGITIS [None]
  - PROCEDURAL PAIN [None]
  - URINARY INCONTINENCE [None]
